FAERS Safety Report 13835392 (Version 1)
Quarter: 2017Q3

REPORT INFORMATION
  Report Type: Spontaneous
  Country: IL (occurrence: IL)
  Receive Date: 20170804
  Receipt Date: 20170804
  Transmission Date: 20171127
  Serious: Yes (Death, Hospitalization)
  Sender: FDA-Public Use
  Company Number: IL-JNJFOC-20170803336

PATIENT
  Sex: Female

DRUGS (3)
  1. DOXORUBICIN HYDROCHLORIDE. [Suspect]
     Active Substance: DOXORUBICIN HYDROCHLORIDE
     Indication: BREAST CANCER
     Route: 065
  2. CYCLOPHOSPHAMIDE. [Suspect]
     Active Substance: CYCLOPHOSPHAMIDE
     Indication: BREAST CANCER
     Route: 065
  3. DEXRAZOXANE. [Suspect]
     Active Substance: DEXRAZOXANE
     Indication: BREAST CANCER
     Route: 065

REACTIONS (12)
  - Bradycardia [Unknown]
  - Neutropenia [Unknown]
  - Toxicity to various agents [Unknown]
  - Pulmonary hypertension [Unknown]
  - Atrial fibrillation [Fatal]
  - Pericardial effusion malignant [Unknown]
  - Anaemia [Unknown]
  - Febrile neutropenia [Fatal]
  - Pericarditis [Unknown]
  - Myocardial ischaemia [Unknown]
  - Cardiac failure congestive [Unknown]
  - Thrombocytopenia [Unknown]
